FAERS Safety Report 4990722-6 (Version None)
Quarter: 2006Q2

REPORT INFORMATION
  Report Type: 
  Country: None (occurrence: None)
  Receive Date: 20060427
  Receipt Date: 20060415
  Transmission Date: 20061013
  Serious: Yes (Hospitalization)
  Sender: FDA-Public Use
  Company Number: S06-USA-01516-02

PATIENT
  Age: 1 Day
  Sex: Female

DRUGS (3)
  1. LEXAPRO [Suspect]
     Indication: ANXIETY
     Dates: start: 20050101, end: 20051124
  2. LEXAPRO [Suspect]
     Indication: ANXIETY
     Dates: start: 20051124, end: 20060101
  3. LEXAPRO [Suspect]
     Indication: DEPRESSION
     Dates: start: 20051124, end: 20060101

REACTIONS (7)
  - DRUG EXPOSURE DURING PREGNANCY [None]
  - DRUG EXPOSURE VIA BREAST MILK [None]
  - DYSKINESIA [None]
  - INSOMNIA [None]
  - NEONATAL RESPIRATORY DISTRESS SYNDROME [None]
  - RESTLESSNESS [None]
  - SCREAMING [None]
